FAERS Safety Report 5797509-5 (Version None)
Quarter: 2008Q2

REPORT INFORMATION
  Report Type: 
  Country: None (occurrence: None)
  Receive Date: 20080630
  Receipt Date: 20080620
  Transmission Date: 20081010
  Serious: Yes (Hospitalization)
  Sender: FDA-Public Use
  Company Number: 430095K07USA

PATIENT
  Age: 61 Year
  Sex: Male
  Weight: 78.9259 kg

DRUGS (5)
  1. NOVANTRONE [Suspect]
     Indication: MULTIPLE SCLEROSIS
     Dosage: INTRAVENOUS (NOT OTHERWISE SPECIFIED)
     Route: 042
     Dates: start: 20060501
  2. AVONEX [Concomitant]
  3. GLYBURIDE [Concomitant]
  4. HYTRIN [Concomitant]
  5. ATENOLOL [Concomitant]

REACTIONS (1)
  - APPENDICITIS [None]
